FAERS Safety Report 24282544 (Version 1)
Quarter: 2024Q3

REPORT INFORMATION
  Report Type: Spontaneous
  Country: IN (occurrence: None)
  Receive Date: 20240902
  Receipt Date: 20240902
  Transmission Date: 20241017
  Serious: Yes (Life-Threatening, Hospitalization)
  Sender: Public
  Company Number: None

PATIENT
  Age: 46 Year
  Sex: Female
  Weight: 54 kg

DRUGS (3)
  1. FERRIC CARBOXYMALTOSE [Suspect]
     Active Substance: FERRIC CARBOXYMALTOSE
     Indication: Anaemia
     Dates: start: 20240824
  2. Oral Iron supplement [Concomitant]
  3. Sompraz Tablets [Concomitant]

REACTIONS (8)
  - Anaphylactic reaction [None]
  - Generalised oedema [None]
  - Nausea [None]
  - Vomiting [None]
  - Dizziness [None]
  - Syncope [None]
  - Haemoglobin decreased [None]
  - Condition aggravated [None]

NARRATIVE: CASE EVENT DATE: 20240824
